FAERS Safety Report 4654501-1 (Version None)
Quarter: 2005Q2

REPORT INFORMATION
  Report Type: 
  Country: None (occurrence: None)
  Receive Date: 20050505
  Receipt Date: 20050505
  Transmission Date: 20051028
  Serious: Yes (Other)
  Sender: FDA-Public Use
  Company Number: None

PATIENT
  Age: 82 Year
  Sex: Female

DRUGS (12)
  1. ROCEPHIN [Suspect]
     Indication: UPPER RESPIRATORY TRACT INFECTION
     Dosage: 1 GM IV PIGGYBACK
     Route: 042
     Dates: start: 20050424
  2. ASPIRIN [Concomitant]
  3. BECONASE AQ [Concomitant]
  4. ALBUTEROL [Concomitant]
  5. ATROVENT [Concomitant]
  6. PROTONIX [Concomitant]
  7. DILTIAZEM [Concomitant]
  8. ALPRAZOLAM [Concomitant]
  9. ADVAIR DISKUS 100/50 [Concomitant]
  10. IBUPROFEN [Concomitant]
  11. CODICLEAR [Concomitant]
  12. LEXAPRO [Concomitant]

REACTIONS (2)
  - INJECTION SITE PAIN [None]
  - PRURITUS [None]
